FAERS Safety Report 7271177-8 (Version None)
Quarter: 2011Q1

REPORT INFORMATION
  Report Type: 
  Country: None (occurrence: None)
  Receive Date: 20110202
  Receipt Date: 20110131
  Transmission Date: 20110831
  Serious: Yes (Other)
  Sender: FDA-Public Use
  Company Number: US-PFIZER INC-2011022984

PATIENT

DRUGS (1)
  1. CHANTIX [Suspect]

REACTIONS (8)
  - CONSTIPATION [None]
  - ABNORMAL DREAMS [None]
  - DEPRESSED MOOD [None]
  - AGITATION [None]
  - NAUSEA [None]
  - SUICIDAL IDEATION [None]
  - ABNORMAL BEHAVIOUR [None]
  - SLEEP DISORDER [None]
